FAERS Safety Report 9713378 (Version 2)
Quarter: 2013Q4

REPORT INFORMATION
  Report Type: Spontaneous
  Country: IN (occurrence: IN)
  Receive Date: 20131126
  Receipt Date: 20131129
  Transmission Date: 20140711
  Serious: Yes (Life-Threatening)
  Sender: FDA-Public Use
  Company Number: IN-ASTRAZENECA-2013SE86248

PATIENT
  Age: 3 Year
  Sex: Female
  Weight: 11 kg

DRUGS (5)
  1. BUPIVACAINE [Suspect]
     Route: 008
  2. SEVOFLURANE [Concomitant]
     Indication: INDUCTION OF ANAESTHESIA
  3. NITROUS OXIDE [Concomitant]
     Indication: INDUCTION OF ANAESTHESIA
  4. OXYGEN [Concomitant]
     Indication: INDUCTION OF ANAESTHESIA
  5. SUXAMETHONIUM [Concomitant]
     Route: 042

REACTIONS (1)
  - Cardiotoxicity [Recovered/Resolved]
